FAERS Safety Report 8383499-8 (Version None)
Quarter: 2012Q2

REPORT INFORMATION
  Report Type: 
  Country: None (occurrence: None)
  Receive Date: 20120524
  Receipt Date: 20120521
  Transmission Date: 20120825
  Serious: Yes (Death, Hospitalization, Other)
  Sender: FDA-Public Use
  Company Number: PHEH2012US004896

PATIENT
  Sex: Female

DRUGS (2)
  1. AFINITOR [Suspect]
     Indication: RENAL CANCER
     Dosage: 10 MG, QD
     Route: 048
  2. AFINITOR [Suspect]
     Dosage: 10 MG, QOD
     Route: 048

REACTIONS (10)
  - HYPOPHAGIA [None]
  - PAIN IN EXTREMITY [None]
  - CONCUSSION [None]
  - FALL [None]
  - SCIATICA [None]
  - DEATH [None]
  - RIB FRACTURE [None]
  - WEIGHT DECREASED [None]
  - TRAUMATIC LUNG INJURY [None]
  - HEAD INJURY [None]
